FAERS Safety Report 8133814-5 (Version None)
Quarter: 2012Q1

REPORT INFORMATION
  Report Type: 
  Country: None (occurrence: None)
  Receive Date: 20120213
  Receipt Date: 20120213
  Transmission Date: 20120608
  Serious: No
  Sender: FDA-Public Use
  Company Number: None

PATIENT
  Age: 66 Year
  Sex: Female
  Weight: 59.42 kg

DRUGS (1)
  1. AVELOX [Suspect]
     Indication: OROPHARYNGEAL PAIN
     Dosage: 400.0 MG
     Dates: start: 20120102, end: 20120103

REACTIONS (3)
  - VERTIGO [None]
  - DIZZINESS [None]
  - HYPERTENSION [None]
